FAERS Safety Report 9391526 (Version 1)
Quarter: 2013Q3

REPORT INFORMATION
  Report Type: Spontaneous
  Country: JP (occurrence: JP)
  Receive Date: 20130709
  Receipt Date: 20130709
  Transmission Date: 20140515
  Serious: Yes (Hospitalization)
  Sender: FDA-Public Use
  Company Number: JP-CUBIST PHARMACEUTICALS, INC.-2013CBST000576

PATIENT
  Sex: 0

DRUGS (11)
  1. CUBICIN [Suspect]
     Indication: POSTOPERATIVE WOUND INFECTION
     Dosage: 240 MG, Q48H
     Route: 041
     Dates: start: 20130312, end: 20130322
  2. CUBICIN [Suspect]
     Dosage: 6.15 MG/KG, Q48H
     Route: 041
     Dates: start: 20130312, end: 20130322
  3. VANCOMYCIN HYDROCHLORIDE [Suspect]
     Indication: POSTOPERATIVE WOUND INFECTION
     Dosage: 2 G, QD (DIVIDED DOSE FREQUENCY UNKNOWN)
     Route: 041
     Dates: start: 20130304, end: 20130304
  4. VANCOMYCIN HYDROCHLORIDE [Suspect]
     Dosage: 1 G, QD (DIVIDED DOSE FREQUENCY UNKNOWN)
     Route: 041
     Dates: start: 20130311, end: 20130311
  5. WARFARIN [Concomitant]
     Indication: PRODUCT USED FOR UNKNOWN INDICATION
     Dosage: UNK UNK, UNK
     Route: 048
  6. BAYASPIRIN [Concomitant]
     Indication: PRODUCT USED FOR UNKNOWN INDICATION
     Dosage: UNK UNK, UNK
     Route: 048
  7. PARIET [Concomitant]
     Indication: PRODUCT USED FOR UNKNOWN INDICATION
     Dosage: UNK UNK, UNK
     Route: 048
  8. PRECIPITATED CALCIUM CARBONATE [Concomitant]
     Indication: PRODUCT USED FOR UNKNOWN INDICATION
     Dosage: UNK UNK, UNK
     Route: 048
  9. RISUMIC [Concomitant]
     Indication: PRODUCT USED FOR UNKNOWN INDICATION
     Dosage: UNK UNK, UNK
     Route: 048
  10. REGPARA [Concomitant]
     Indication: PRODUCT USED FOR UNKNOWN INDICATION
     Dosage: UNK UNK, UNK
     Route: 048
  11. FLUTIDE:DISKUS [Concomitant]
     Indication: PRODUCT USED FOR UNKNOWN INDICATION
     Dosage: UNK UNK, UNK
     Route: 055

REACTIONS (2)
  - Neutropenia [Recovered/Resolved]
  - White blood cell count decreased [None]
